FAERS Safety Report 9018044 (Version 1)
Quarter: 2013Q1

REPORT INFORMATION
  Report Type: Spontaneous
  Country: US (occurrence: None)
  Receive Date: 20130110
  Receipt Date: 20130110
  Transmission Date: 20140127
  Serious: Yes (Other)
  Sender: FDA-Public Use
  Company Number: None

PATIENT
  Sex: Male

DRUGS (1)
  1. XELODA [Suspect]
     Indication: COLON CANCER
     Dosage: 1000 MG BID PO
     Route: 048
     Dates: start: 20120115

REACTIONS (5)
  - Hypoaesthesia [None]
  - Hypoaesthesia oral [None]
  - Paraesthesia oral [None]
  - Paraesthesia [None]
  - Infusion related reaction [None]
